FAERS Safety Report 24139768 (Version 2)
Quarter: 2024Q3

REPORT INFORMATION
  Report Type: Spontaneous
  Country: US (occurrence: US)
  Receive Date: 20240726
  Receipt Date: 20240816
  Transmission Date: 20241017
  Serious: No
  Sender: IPSEN
  Company Number: US-IPSEN Group, Research and Development-2024-14554

PATIENT
  Sex: Male

DRUGS (1)
  1. SOMATULINE DEPOT [Suspect]
     Active Substance: LANREOTIDE ACETATE
     Indication: Acromegaly
     Route: 058

REACTIONS (2)
  - Drug ineffective [Unknown]
  - Adverse drug reaction [Unknown]
